FAERS Safety Report 21449466 (Version 2)
Quarter: 2023Q1

REPORT INFORMATION
  Report Type: Spontaneous
  Country: US (occurrence: US)
  Receive Date: 20221013
  Receipt Date: 20230129
  Transmission Date: 20230417
  Serious: No
  Sender: FDA-Public Use
  Company Number: US-CIPLA LTD.-2022US05873

PATIENT
  Sex: Female

DRUGS (1)
  1. ALBUTEROL [Suspect]
     Active Substance: ALBUTEROL
     Indication: Lung disorder
     Dosage: 0.18 MILLIGRAM (2 PUFFS EVERY 4 HOURS)
     Dates: start: 20220919

REACTIONS (4)
  - Incorrect dose administered by product [Unknown]
  - Product taste abnormal [Unknown]
  - Device delivery system issue [Unknown]
  - Product delivery mechanism issue [Unknown]

NARRATIVE: CASE EVENT DATE: 20220920
